FAERS Safety Report 4562471-X (Version None)
Quarter: 2005Q1

REPORT INFORMATION
  Report Type: 
  Country: None (occurrence: None)
  Receive Date: 20050121
  Receipt Date: 20050105
  Transmission Date: 20050727
  Serious: Yes (Other)
  Sender: FDA-Public Use
  Company Number: USA050187514

PATIENT
  Age: 45 Year
  Sex: Male

DRUGS (3)
  1. CYMBALTA [Suspect]
     Dosage: 60 MG
  2. PROZAC [Suspect]
  3. LITHIUM [Concomitant]

REACTIONS (1)
  - RENAL FAILURE [None]
